FAERS Safety Report 10260616 (Version 1)
Quarter: 2014Q2

REPORT INFORMATION
  Report Type: Not Available
  Country: DE (occurrence: DE)
  Receive Date: 20140626
  Receipt Date: 20140626
  Transmission Date: 20141212
  Serious: Yes (Other)
  Sender: FDA-Public Use
  Company Number: DE-BEH-2014043361

PATIENT
  Age: 62 Year
  Sex: Male

DRUGS (1)
  1. PRIVIGEN [Suspect]
     Route: 042

REACTIONS (2)
  - Spinal pain [Recovered/Resolved]
  - Pain [Recovered/Resolved]
